FAERS Safety Report 10977689 (Version 1)
Quarter: 2015Q2

REPORT INFORMATION
  Report Type: Spontaneous
  Country: FR (occurrence: None)
  Receive Date: 20150401
  Receipt Date: 20150401
  Transmission Date: 20150821
  Serious: Yes (Life-Threatening, Hospitalization)
  Sender: FDA-Public Use
  Company Number: None

PATIENT
  Age: 26 Year
  Sex: Female
  Weight: 62.14 kg

DRUGS (2)
  1. CYMBALTA [Concomitant]
     Active Substance: DULOXETINE HYDROCHLORIDE
  2. CYMBALTA [Suspect]
     Active Substance: DULOXETINE HYDROCHLORIDE
     Indication: DEPRESSION
     Dosage: 1 PILL?EVERY MONTH SINCE MAR 2014
     Route: 048
     Dates: start: 201403

REACTIONS (12)
  - Agitation [None]
  - Paranoia [None]
  - Irritability [None]
  - Tremor [None]
  - Headache [None]
  - Hostility [None]
  - Suicidal ideation [None]
  - Anxiety [None]
  - Nausea [None]
  - Depression [None]
  - Arthralgia [None]
  - Fatigue [None]

NARRATIVE: CASE EVENT DATE: 20150331
